FAERS Safety Report 21864132 (Version 2)
Quarter: 2023Q1

REPORT INFORMATION
  Report Type: Report from Study
  Country: US (occurrence: US)
  Receive Date: 20230116
  Receipt Date: 20230315
  Transmission Date: 20230418
  Serious: No
  Sender: FDA-Public Use
  Company Number: US-ABBVIE-4239943

PATIENT
  Sex: Male

DRUGS (1)
  1. HUMIRA [Suspect]
     Active Substance: ADALIMUMAB
     Indication: Rheumatoid arthritis
     Dosage: CITRATE FREE
     Route: 058
     Dates: start: 20180406

REACTIONS (5)
  - Joint swelling [Recovering/Resolving]
  - Sinus disorder [Recovering/Resolving]
  - Gingival recession [Recovering/Resolving]
  - Pain in extremity [Recovering/Resolving]
  - Psoriatic arthropathy [Unknown]
